FAERS Safety Report 21510253 (Version 1)
Quarter: 2022Q4

REPORT INFORMATION
  Report Type: Report from Study
  Country: US (occurrence: US)
  Receive Date: 20221026
  Receipt Date: 20221026
  Transmission Date: 20230112
  Serious: Yes (Other)
  Sender: FDA-Public Use
  Company Number: US-JAZZ-2022-US-026355

PATIENT
  Sex: Female

DRUGS (3)
  1. XYWAV [Suspect]
     Active Substance: CALCIUM OXYBATE\MAGNESIUM OXYBATE\POTASSIUM OXYBATE\SODIUM OXYBATE
     Indication: Narcolepsy
     Dosage: UNK
  2. IMITREX [Concomitant]
     Active Substance: SUMATRIPTAN SUCCINATE
     Dosage: UNK
     Dates: start: 20180101
  3. EPIPEN JR [Concomitant]
     Active Substance: EPINEPHRINE
     Dosage: UNK
     Dates: start: 20130101

REACTIONS (4)
  - Splenectomy [Unknown]
  - Endometriosis [Unknown]
  - Polycystic ovaries [Unknown]
  - Depression [Unknown]
